FAERS Safety Report 23319209 (Version 1)
Quarter: 2023Q4

REPORT INFORMATION
  Report Type: Report from Study
  Country: US (occurrence: US)
  Receive Date: 20231220
  Receipt Date: 20231220
  Transmission Date: 20240110
  Serious: Yes (Death, Hospitalization)
  Sender: FDA-Public Use
  Company Number: US-ABBVIE-5549294

PATIENT
  Age: 85 Year
  Sex: Male

DRUGS (1)
  1. VENCLEXTA [Suspect]
     Active Substance: VENETOCLAX
     Indication: Chronic myelomonocytic leukaemia
     Dosage: FORM STRENGTH: 100 MILLIGRAM
     Route: 048
     Dates: start: 20220802

REACTIONS (4)
  - Death [Fatal]
  - Off label use [Unknown]
  - Illness [Unknown]
  - Disability [Unknown]

NARRATIVE: CASE EVENT DATE: 20230601
